FAERS Safety Report 8626735 (Version 4)
Quarter: 2013Q4

REPORT INFORMATION
  Report Type: Spontaneous
  Country: US (occurrence: US)
  Receive Date: 20120620
  Receipt Date: 20131002
  Transmission Date: 20140711
  Serious: No
  Sender: FDA-Public Use
  Company Number: US-ASTRAZENECA-2012SE39308

PATIENT
  Age: 72 Year
  Sex: Female
  Weight: 97.5 kg

DRUGS (21)
  1. SEROQUEL [Suspect]
     Indication: DEPRESSION
     Route: 048
  2. SEROQUEL [Suspect]
     Indication: ANXIETY
     Route: 048
  3. SEROQUEL [Suspect]
     Indication: DEPRESSION
     Route: 048
     Dates: start: 201001
  4. SEROQUEL [Suspect]
     Indication: ANXIETY
     Route: 048
     Dates: start: 201001
  5. SEROQUEL [Suspect]
     Indication: DEPRESSION
     Route: 048
  6. SEROQUEL [Suspect]
     Indication: ANXIETY
     Route: 048
  7. SEROQUEL [Suspect]
     Indication: DEPRESSION
     Dosage: GENERIC
     Route: 048
  8. SEROQUEL [Suspect]
     Indication: ANXIETY
     Dosage: GENERIC
     Route: 048
  9. SEROQUEL [Suspect]
     Indication: DEPRESSION
     Route: 048
  10. SEROQUEL [Suspect]
     Indication: ANXIETY
     Route: 048
  11. SEROQUEL [Suspect]
     Indication: DEPRESSION
     Route: 048
  12. SEROQUEL [Suspect]
     Indication: ANXIETY
     Route: 048
  13. SEROQUEL [Suspect]
     Indication: DEPRESSION
     Route: 048
  14. SEROQUEL [Suspect]
     Indication: ANXIETY
     Route: 048
  15. SEROQUEL [Suspect]
     Indication: DEPRESSION
     Dosage: AT NIGHT
     Route: 048
     Dates: start: 201204
  16. SEROQUEL [Suspect]
     Indication: ANXIETY
     Dosage: AT NIGHT
     Route: 048
     Dates: start: 201204
  17. SEROQUEL [Suspect]
     Indication: DEPRESSION
     Route: 048
  18. SEROQUEL [Suspect]
     Indication: ANXIETY
     Route: 048
  19. REMRON [Concomitant]
     Dosage: GENERIC, 45 MG DAILY
  20. LORAZEPAM [Concomitant]
  21. ZOLPIDIEM [Concomitant]

REACTIONS (7)
  - Insomnia [Recovered/Resolved]
  - Anxiety disorder [Recovered/Resolved]
  - Adverse drug reaction [Unknown]
  - Mental impairment [Unknown]
  - Feeling jittery [Recovered/Resolved]
  - Off label use [Unknown]
  - Intentional drug misuse [Unknown]
